FAERS Safety Report 6527112-0 (Version None)
Quarter: 2009Q4

REPORT INFORMATION
  Report Type: 
  Country: None (occurrence: None)
  Receive Date: 20091230
  Receipt Date: 20091217
  Transmission Date: 20100525
  Serious: Yes (Other)
  Sender: FDA-Public Use
  Company Number: 2009-03641

PATIENT
  Age: 54 Year
  Sex: Female

DRUGS (6)
  1. VELCADE [Suspect]
     Indication: MULTIPLE MYELOMA
     Dosage: 1.3 MG/M2, CYCLIC, INTRAVENOUS; 1.9 MG, CYCLIC, INTRAVENOUS
     Route: 042
     Dates: start: 20070423, end: 20070423
  2. VELCADE [Suspect]
     Indication: MULTIPLE MYELOMA
     Dosage: 1.3 MG/M2, CYCLIC, INTRAVENOUS; 1.9 MG, CYCLIC, INTRAVENOUS
     Route: 042
     Dates: start: 20070423, end: 20080118
  3. DEXAMETHASONE TAB [Concomitant]
  4. BACTRIM [Concomitant]
  5. BIOFERMIN (STREPTOCOCCUS FAECALIS, LACTOBACILLUS ACIDOPHILUS, BACILLUS [Concomitant]
  6. CALCIUM LACTATE (CALCIUM LACTATE) [Concomitant]

REACTIONS (10)
  - ANAEMIA [None]
  - BLOOD SODIUM DECREASED [None]
  - HERPES ZOSTER [None]
  - HYPERAMYLASAEMIA [None]
  - HYPOAESTHESIA [None]
  - LYMPHOPENIA [None]
  - NEUTROPENIA [None]
  - POST HERPETIC NEURALGIA [None]
  - STOMATITIS [None]
  - THROMBOCYTOPENIA [None]
